FAERS Safety Report 20390640 (Version 5)
Quarter: 2022Q1

REPORT INFORMATION
  Report Type: Report from Study
  Country: US (occurrence: US)
  Receive Date: 20220128
  Receipt Date: 20220228
  Transmission Date: 20220423
  Serious: Yes (Hospitalization, Other)
  Sender: FDA-Public Use
  Company Number: US-BAYER-2022A009153

PATIENT
  Age: 70 Year
  Sex: Female
  Weight: 68.481 kg

DRUGS (12)
  1. ADEMPAS [Suspect]
     Active Substance: RIOCIGUAT
     Indication: Pulmonary arterial hypertension
     Dosage: UNK
     Route: 048
     Dates: start: 20211020
  2. ADEMPAS [Suspect]
     Active Substance: RIOCIGUAT
     Indication: Product used for unknown indication
     Dosage: 2.5 MG, TID
     Route: 048
  3. ADEMPAS [Suspect]
     Active Substance: RIOCIGUAT
     Indication: Pulmonary arterial hypertension
     Dosage: 2 MG, TID
     Route: 048
  4. REMODULIN [Concomitant]
     Active Substance: TREPROSTINIL
     Dosage: UNK
     Dates: end: 20220128
  5. REMODULIN [Concomitant]
     Active Substance: TREPROSTINIL
     Dosage: UNK
     Dates: start: 20220128
  6. REMODULIN [Concomitant]
     Active Substance: TREPROSTINIL
     Dosage: 0.134 UNK
     Route: 042
  7. REMODULIN [Concomitant]
     Active Substance: TREPROSTINIL
     Dosage: 0.137 ?G/KG
  8. REMODULIN [Concomitant]
     Active Substance: TREPROSTINIL
     Dosage: 0.139 ?G/KG
     Route: 042
  9. REMODULIN [Concomitant]
     Active Substance: TREPROSTINIL
     Dosage: 0.137 ?G/KG
     Route: 042
  10. REMODULIN [Concomitant]
     Active Substance: TREPROSTINIL
     Dosage: UNK
     Route: 042
     Dates: start: 20220115
  11. REMODULIN [Concomitant]
     Active Substance: TREPROSTINIL
     Dosage: 0.139 ?G/KG
     Route: 042
  12. LEVAQUIN [Concomitant]
     Active Substance: LEVOFLOXACIN
     Indication: Lower respiratory tract infection
     Dosage: UNK

REACTIONS (26)
  - Presyncope [Recovering/Resolving]
  - Autoimmune disorder [None]
  - Muscle disorder [None]
  - Musculoskeletal disorder [None]
  - Hypotension [Recovered/Resolved]
  - Lower respiratory tract infection [None]
  - Dizziness [Not Recovered/Not Resolved]
  - Blood pressure decreased [None]
  - Drug intolerance [None]
  - Peripheral swelling [Recovering/Resolving]
  - Anxiety [None]
  - Nervousness [None]
  - Product dose omission issue [None]
  - Vomiting [None]
  - Diarrhoea [None]
  - Fatigue [None]
  - Asthenia [None]
  - Hypervolaemia [None]
  - Oedema [None]
  - Feeling abnormal [None]
  - Peripheral swelling [None]
  - Malaise [None]
  - Device connection issue [None]
  - Vomiting [None]
  - Diarrhoea [None]
  - Hypervolaemia [None]

NARRATIVE: CASE EVENT DATE: 20220117
